FAERS Safety Report 6981811-5 (Version None)
Quarter: 2010Q3

REPORT INFORMATION
  Report Type: 
  Country: None (occurrence: None)
  Receive Date: 20100914
  Receipt Date: 20090922
  Transmission Date: 20110219
  Serious: No
  Sender: FDA-Public Use
  Company Number: US-PFIZER INC-2009273029

PATIENT
  Sex: Female

DRUGS (2)
  1. LYRICA [Suspect]
     Indication: POST HERPETIC NEURALGIA
     Dosage: UNK
  2. LORTAB [Suspect]
     Indication: POST HERPETIC NEURALGIA

REACTIONS (1)
  - RASH GENERALISED [None]
